FAERS Safety Report 7622215-1 (Version None)
Quarter: 2011Q3

REPORT INFORMATION
  Report Type: 
  Country: None (occurrence: None)
  Receive Date: 20110720
  Receipt Date: 20110613
  Transmission Date: 20111222
  Serious: Yes (Hospitalization)
  Sender: FDA-Public Use
  Company Number: US-BAYER-200942550NA

PATIENT
  Age: 27 Year
  Sex: Female
  Weight: 96.145 kg

DRUGS (8)
  1. MIRALAX [Concomitant]
     Route: 048
  2. ACID REDUCER [Concomitant]
     Route: 048
  3. GAS-X [Concomitant]
     Route: 048
  4. DROSPIRENONE AND ETHINYL ESTRADIOL [Suspect]
     Indication: CONTRACEPTION
     Route: 065
  5. NASONEX [Concomitant]
     Indication: PRODUCT USED FOR UNKNOWN INDICATION
     Route: 065
  6. PROBIOTICS [Concomitant]
  7. ZYRTEC [Concomitant]
     Indication: PRODUCT USED FOR UNKNOWN INDICATION
     Route: 065
  8. YASMIN [Suspect]
     Indication: CONTRACEPTION
     Dosage: UNK UNK, UNK
     Route: 065
     Dates: start: 20071217, end: 20090801

REACTIONS (2)
  - PULMONARY EMBOLISM [None]
  - PAIN [None]
